FAERS Safety Report 12847474 (Version 1)
Quarter: 2016Q4

REPORT INFORMATION
  Report Type: Report from Study
  Country: IT (occurrence: IT)
  Receive Date: 20161014
  Receipt Date: 20161014
  Transmission Date: 20170207
  Serious: Yes (Other)
  Sender: FDA-Public Use
  Company Number: IT-BRISTOL-MYERS SQUIBB COMPANY-BMS-2016-083616

PATIENT
  Age: 83 Year
  Sex: Female

DRUGS (1)
  1. NIVOLUMAB [Suspect]
     Active Substance: NIVOLUMAB
     Indication: NON-SMALL CELL LUNG CANCER
     Dosage: 3 MG/KG, UNK
     Route: 042

REACTIONS (7)
  - Post procedural hypothyroidism [Unknown]
  - Conjunctivitis [Unknown]
  - Dizziness [Unknown]
  - Diplopia [Unknown]
  - Angiopathy [Unknown]
  - Thyroidectomy [Unknown]
  - Paralysis [Unknown]

NARRATIVE: CASE EVENT DATE: 20151216
